FAERS Safety Report 14457193 (Version 1)
Quarter: 2018Q1

REPORT INFORMATION
  Report Type: Spontaneous
  Country: US (occurrence: US)
  Receive Date: 20180127
  Receipt Date: 20180127
  Transmission Date: 20180509
  Serious: Yes (Hospitalization)
  Sender: FDA-Public Use
  Company Number: None

PATIENT
  Age: 90 Year
  Sex: Male

DRUGS (16)
  1. NUPLAZID [Suspect]
     Active Substance: PIMAVANSERIN TARTRATE
     Indication: PARKINSON^S DISEASE
     Route: 048
     Dates: start: 201612
  2. AMOXICILLIN. [Concomitant]
     Active Substance: AMOXICILLIN
  3. LISINOPRIL. [Concomitant]
     Active Substance: LISINOPRIL
  4. MEMANTINE. [Concomitant]
     Active Substance: MEMANTINE
  5. TIMOLOL MAL [Concomitant]
  6. OMEPRAZOLE. [Concomitant]
     Active Substance: OMEPRAZOLE
  7. TAMSULOSIN [Concomitant]
     Active Substance: TAMSULOSIN
  8. ZIPRASIDONE. [Concomitant]
     Active Substance: ZIPRASIDONE
  9. SERTRALINE [Concomitant]
     Active Substance: SERTRALINE HYDROCHLORIDE
  10. AMLODIPINE [Concomitant]
     Active Substance: AMLODIPINE BESYLATE
  11. QUETIAPINE. [Concomitant]
     Active Substance: QUETIAPINE
  12. LAMOTRIGINE. [Concomitant]
     Active Substance: LAMOTRIGINE
  13. GEODON [Concomitant]
     Active Substance: ZIPRASIDONE HYDROCHLORIDE\ZIPRASIDONE MESYLATE
  14. BRIMONIDINE [Concomitant]
     Active Substance: BRIMONIDINE TARTRATE
  15. EXELON [Concomitant]
     Active Substance: RIVASTIGMINE TARTRATE
  16. LATANOPROST. [Concomitant]
     Active Substance: LATANOPROST

REACTIONS (1)
  - Urinary tract infection [None]

NARRATIVE: CASE EVENT DATE: 20180121
